FAERS Safety Report 24806030 (Version 1)
Quarter: 2025Q1

REPORT INFORMATION
  Report Type: Spontaneous
  Country: US (occurrence: US)
  Receive Date: 20250103
  Receipt Date: 20250103
  Transmission Date: 20250409
  Serious: No
  Sender: PFIZER
  Company Number: US-PFIZER INC-202400334725

PATIENT
  Age: 57 Year
  Sex: Female
  Weight: 47.6 kg

DRUGS (3)
  1. CIPROFLOXACIN [Suspect]
     Active Substance: CIPROFLOXACIN
  2. BACLOFEN [Concomitant]
     Active Substance: BACLOFEN
     Dosage: (10 MG  REGULARLY)
  3. VALIUM [Concomitant]
     Active Substance: DIAZEPAM
     Dosage: (10 MG, 3 TIMES A DAY)

REACTIONS (4)
  - Gastrointestinal disorder [Unknown]
  - Rash [Unknown]
  - Pruritus [Unknown]
  - Dyspnoea [Unknown]
